FAERS Safety Report 4958244-6 (Version None)
Quarter: 2006Q1

REPORT INFORMATION
  Report Type: 
  Country: None (occurrence: None)
  Receive Date: 20060330
  Receipt Date: 20060320
  Transmission Date: 20060701
  Serious: Yes (Hospitalization)
  Sender: FDA-Public Use
  Company Number: AU-GLAXOSMITHKLINE-B0417007A

PATIENT
  Age: 81 Year
  Sex: Male

DRUGS (3)
  1. AMOXYCILLIN SODIUM [Suspect]
     Dosage: 2G PER DAY
     Route: 048
     Dates: start: 20050112, end: 20050114
  2. AUGMENTIN '125' [Suspect]
     Dosage: 2U PER DAY
     Route: 048
     Dates: start: 20050107, end: 20050111
  3. PLAVIX [Concomitant]
     Route: 048
     Dates: start: 20040815, end: 20050114

REACTIONS (3)
  - CONTUSION [None]
  - HAEMATURIA [None]
  - THROMBOCYTOPENIA [None]
